FAERS Safety Report 5118447-7 (Version None)
Quarter: 2006Q4

REPORT INFORMATION
  Report Type: 
  Country: None (occurrence: None)
  Receive Date: 20061002
  Receipt Date: 20060801
  Transmission Date: 20070319
  Serious: Yes (Hospitalization, Other)
  Sender: FDA-Public Use
  Company Number: US-BRISTOL-MYERS SQUIBB COMPANY-13461850

PATIENT
  Age: 41 Year
  Sex: Female
  Weight: 170 kg

DRUGS (3)
  1. ERBITUX [Suspect]
     Indication: BREAST CANCER
     Route: 042
     Dates: start: 20060228, end: 20060719
  2. CARBOPLATIN [Suspect]
     Indication: BREAST CANCER
     Dosage: DAY 1 AND DAY 8
     Route: 042
     Dates: start: 20060228, end: 20060719
  3. IRINOTECAN HCL [Suspect]
     Indication: BREAST CANCER
     Dosage: ON DAY 1 AND DAY 8
     Route: 042
     Dates: start: 20060228, end: 20060719

REACTIONS (3)
  - METASTASES TO CENTRAL NERVOUS SYSTEM [None]
  - PLEURAL EFFUSION [None]
  - PULMONARY EMBOLISM [None]
